FAERS Safety Report 8169268-2 (Version None)
Quarter: 2012Q1

REPORT INFORMATION
  Report Type: 
  Country: None (occurrence: None)
  Receive Date: 20120228
  Receipt Date: 20120217
  Transmission Date: 20120608
  Serious: Yes (Other)
  Sender: FDA-Public Use
  Company Number: US-ASTRAZENECA-2011SE50949

PATIENT
  Age: 53 Year
  Sex: Female

DRUGS (2)
  1. NEXIUM [Suspect]
     Route: 048
  2. NEXIUM [Suspect]
     Dosage: TWO TIMES A DAY
     Route: 048

REACTIONS (4)
  - GASTROINTESTINAL ULCER HAEMORRHAGE [None]
  - OESOPHAGEAL ULCER [None]
  - LARGE INTESTINAL ULCER [None]
  - DRUG DOSE OMISSION [None]
